FAERS Safety Report 8787994 (Version 2)
Quarter: 2012Q4

REPORT INFORMATION
  Report Type: 
  Country: JP (occurrence: JP)
  Receive Date: 20120914
  Receipt Date: 20120927
  Transmission Date: 20130627
  Serious: Yes (Hospitalization, Other)
  Sender: FDA-Public Use
  Company Number: JP-PFIZER INC-2012221598

PATIENT
  Age: 38 Year
  Sex: Female

DRUGS (4)
  1. AZULFIDINE EN [Suspect]
     Indication: RHEUMATOID ARTHRITIS
     Dosage: UNK
     Route: 048
  2. TAKEPRON [Suspect]
     Dosage: UNK
     Route: 048
  3. ZYPREXA [Concomitant]
     Dosage: UNK
     Route: 048
  4. VOLTAREN [Concomitant]
     Dosage: UNK
     Route: 048

REACTIONS (1)
  - Agranulocytosis [Unknown]
